FAERS Safety Report 9697189 (Version 2)
Quarter: 2013Q4

REPORT INFORMATION
  Report Type: Report from Study
  Country: DE (occurrence: DE)
  Receive Date: 20131120
  Receipt Date: 20131226
  Transmission Date: 20140711
  Serious: Yes (Hospitalization)
  Sender: FDA-Public Use
  Company Number: DE-ROCHE-1302294

PATIENT
  Age: 60 Year
  Sex: Female
  Weight: 54 kg

DRUGS (8)
  1. BEVACIZUMAB [Suspect]
     Indication: OVARIAN CANCER
     Dosage: LAST DOSE PRIOR TO THE EVENT: 17/OCT/2013.
     Route: 042
     Dates: start: 20120522
  2. CARBOPLATIN [Suspect]
     Indication: OVARIAN CANCER
     Dosage: LAST DOSE PRIOR TO THE EVENT: 02/OCT/2012
     Route: 042
     Dates: start: 20120522
  3. PACLITAXEL [Suspect]
     Indication: OVARIAN CANCER
     Dosage: LAST DOSE PRIOR TO THE EVENT: 02/OCT/2012.
     Route: 042
     Dates: start: 20120522
  4. TRAMAL [Concomitant]
     Indication: PAIN
     Route: 042
     Dates: start: 20131105, end: 20131107
  5. PARACETAMOL [Concomitant]
     Indication: PAIN
     Route: 048
     Dates: start: 20131105, end: 20131107
  6. NOVALGIN [Concomitant]
     Indication: PAIN
     Route: 042
     Dates: start: 20131105, end: 20131107
  7. OXYGESIC [Concomitant]
     Indication: PAIN
     Route: 042
     Dates: start: 20131106, end: 20131107
  8. METOCLOPRAMIDE [Concomitant]
     Indication: NAUSEA
     Route: 042
     Dates: start: 20131105, end: 20131107

REACTIONS (1)
  - Lumbar radiculopathy [Recovering/Resolving]
